FAERS Safety Report 7428096-3 (Version None)
Quarter: 2011Q2

REPORT INFORMATION
  Report Type: 
  Country: None (occurrence: None)
  Receive Date: 20110421
  Receipt Date: 20110413
  Transmission Date: 20111010
  Serious: No
  Sender: FDA-Public Use
  Company Number: US-BIOGENIDEC-2011BI001204

PATIENT
  Sex: Female

DRUGS (1)
  1. TYSABRI [Suspect]
     Indication: CROHN'S DISEASE
     Route: 042
     Dates: start: 20080422

REACTIONS (10)
  - VISUAL IMPAIRMENT [None]
  - ARTHRITIS [None]
  - CROHN'S DISEASE [None]
  - CHEST DISCOMFORT [None]
  - APHASIA [None]
  - ADVERSE DRUG REACTION [None]
  - STRESS [None]
  - FATIGUE [None]
  - THROAT TIGHTNESS [None]
  - ASTHENIA [None]
